FAERS Safety Report 6862187-0 (Version None)
Quarter: 2010Q3

REPORT INFORMATION
  Report Type: 
  Country: None (occurrence: None)
  Receive Date: 20100719
  Receipt Date: 20100708
  Transmission Date: 20110219
  Serious: Yes (Other)
  Sender: FDA-Public Use
  Company Number: UTC-001032

PATIENT
  Age: 66 Year
  Sex: Female
  Weight: 86.2 kg

DRUGS (12)
  1. REMODULIN [Suspect]
     Indication: PULMONARY ARTERIAL HYPERTENSION
     Dosage: 115.2 UG/KG (0.08 UG/KG, 1 IN 1 MIN), INTRAVENOUS
     Route: 042
     Dates: start: 20070101
  2. REVATIO [Suspect]
     Indication: PULMONARY ARTERIAL HYPERTENSION
     Dosage: 120 MG, (40 MG, 3 IN 1 D)
     Dates: start: 20050101
  3. AMBRISENTAN (AMBRISENTAN) [Concomitant]
  4. POTASSIUM CHLORIDE [Concomitant]
  5. LASIX [Concomitant]
  6. PREMARIN [Concomitant]
  7. NEXIUM [Concomitant]
  8. MAGNESIUM (MAGNESIUM) [Concomitant]
  9. CLARITIN [Concomitant]
  10. INSULIN (INSULIN) [Concomitant]
  11. OXYGEN (OXYGEN) [Concomitant]
  12. LATHYRUS [Concomitant]

REACTIONS (9)
  - ANXIETY [None]
  - ASCITES [None]
  - FATIGUE [None]
  - HYPERTENSION [None]
  - NERVOUSNESS [None]
  - OEDEMA [None]
  - RIGHT VENTRICULAR FAILURE [None]
  - SLUGGISHNESS [None]
  - TACHYCARDIA [None]
